FAERS Safety Report 20436585 (Version 6)
Quarter: 2022Q2

REPORT INFORMATION
  Report Type: Report from Study
  Country: US (occurrence: US)
  Receive Date: 20220207
  Receipt Date: 20220418
  Transmission Date: 20220720
  Serious: Yes (Other)
  Sender: FDA-Public Use
  Company Number: US-NOVARTISTESTPH-NVSC2022US024207

PATIENT
  Sex: Female

DRUGS (3)
  1. PIQRAY [Suspect]
     Active Substance: ALPELISIB
     Indication: Breast cancer
     Dosage: 300 MG, QD (TABLET)
     Route: 048
  2. PIQRAY [Suspect]
     Active Substance: ALPELISIB
     Dosage: UNK
     Route: 048
     Dates: start: 20220221
  3. AFINITOR [Suspect]
     Active Substance: EVEROLIMUS
     Indication: Breast cancer
     Dosage: UNK, QD
     Route: 048

REACTIONS (17)
  - Heart rate increased [Recovered/Resolved]
  - Breast cancer [Not Recovered/Not Resolved]
  - Malignant neoplasm progression [Not Recovered/Not Resolved]
  - Hyperglycaemia [Recovering/Resolving]
  - Burning sensation [Not Recovered/Not Resolved]
  - Gait disturbance [Unknown]
  - Dehydration [Unknown]
  - Dizziness [Unknown]
  - Dehydration [Recovered/Resolved]
  - Ageusia [Recovered/Resolved]
  - Vomiting [Recovering/Resolving]
  - Vomiting [Recovered/Resolved]
  - Weight decreased [Not Recovered/Not Resolved]
  - Diarrhoea [Unknown]
  - Rash [Recovered/Resolved]
  - Nausea [Recovering/Resolving]
  - Blood glucose increased [Unknown]
